FAERS Safety Report 18858406 (Version 1)
Quarter: 2021Q1

REPORT INFORMATION
  Report Type: Spontaneous
  Country: US (occurrence: US)
  Receive Date: 20210208
  Receipt Date: 20210208
  Transmission Date: 20210420
  Serious: Yes (Death, Other)
  Sender: FDA-Public Use
  Company Number: US-PURACAP-US-2021EPCLIT00083

PATIENT
  Age: 37 Year
  Sex: Male

DRUGS (2)
  1. NOREPINEPHRINE. [Interacting]
     Active Substance: NOREPINEPHRINE
     Indication: DISTRIBUTIVE SHOCK
     Route: 065
  2. AMLODIPINE [Suspect]
     Active Substance: AMLODIPINE BESYLATE
     Indication: BLOOD PRESSURE MEASUREMENT
     Route: 048

REACTIONS (8)
  - Intentional overdose [Fatal]
  - Coma [Fatal]
  - Toxicity to various agents [Fatal]
  - Acute respiratory distress syndrome [Fatal]
  - Hypotension [Fatal]
  - Leukaemoid reaction [Fatal]
  - Distributive shock [Fatal]
  - Cardio-respiratory arrest [Fatal]
